FAERS Safety Report 4475781-1 (Version None)
Quarter: 2004Q4

REPORT INFORMATION
  Report Type: 
  Country: None (occurrence: None)
  Receive Date: 20041015
  Receipt Date: 20040528
  Transmission Date: 20050328
  Serious: Yes (Hospitalization)
  Sender: FDA-Public Use
  Company Number: FR-GLAXOSMITHKLINE-B0334451A

PATIENT
  Age: 70 Year
  Sex: Female
  Weight: 67.3 kg

DRUGS (2)
  1. AVANDIA [Suspect]
     Indication: DIABETES MELLITUS NON-INSULIN-DEPENDENT
     Route: 048
     Dates: start: 20030910
  2. DAONIL [Concomitant]
     Indication: DIABETES MELLITUS NON-INSULIN-DEPENDENT
     Dosage: 15MG PER DAY
     Route: 048
     Dates: start: 20030801

REACTIONS (10)
  - ANAEMIA [None]
  - ASTHENIA [None]
  - CHRONIC LYMPHOCYTIC LEUKAEMIA [None]
  - DYSPNOEA EXERTIONAL [None]
  - GASTROINTESTINAL HAEMORRHAGE [None]
  - GENERALISED OEDEMA [None]
  - LEUKOCYTOSIS [None]
  - LYMPHOCYTE COUNT INCREASED [None]
  - LYMPHOCYTOSIS [None]
  - VITAMIN B12 DEFICIENCY [None]
